FAERS Safety Report 14321500 (Version 2)
Quarter: 2018Q1

REPORT INFORMATION
  Report Type: Report from Study
  Country: TW (occurrence: TW)
  Receive Date: 20171223
  Receipt Date: 20180102
  Transmission Date: 20180509
  Serious: Yes (Other)
  Sender: FDA-Public Use
  Company Number: PHHY2017TW192326

PATIENT
  Age: 53 Year
  Sex: Male

DRUGS (14)
  1. TASIGNA [Suspect]
     Active Substance: NILOTINIB
     Dosage: 300 OT, UNK
     Route: 048
     Dates: start: 20141222, end: 20150503
  2. COLCHICINE. [Concomitant]
     Active Substance: COLCHICINE
     Indication: GOUTY ARTHRITIS
     Dosage: 0.5 MG, UNK
     Route: 048
     Dates: start: 20140707, end: 20140714
  3. FEBURIC [Concomitant]
     Active Substance: FEBUXOSTAT
     Dosage: 40 MG, UNK
     Route: 048
     Dates: start: 20150407
  4. SINOMIN [Concomitant]
     Indication: PROPHYLAXIS
     Dosage: 1 GTT, UNK
     Route: 065
     Dates: start: 20161104, end: 20161202
  5. CUTIVATE [Concomitant]
     Active Substance: FLUTICASONE PROPIONATE
     Indication: GOUTY ARTHRITIS
     Dosage: 1 DF 5G/TUBE, UNK
     Route: 065
     Dates: start: 20140804, end: 20140929
  6. FOLIC ACID. [Concomitant]
     Active Substance: FOLIC ACID
     Indication: CHRONIC MYELOID LEUKAEMIA
     Dosage: 5 MG, UNK
     Route: 048
     Dates: start: 20141124
  7. FOLIC ACID. [Concomitant]
     Active Substance: FOLIC ACID
     Dosage: 5 MG, UNK
     Route: 048
     Dates: start: 20170123
  8. TASIGNA [Suspect]
     Active Substance: NILOTINIB
     Dosage: 600 OT, UNK
     Route: 048
     Dates: start: 20150504
  9. EURICON [Concomitant]
     Indication: GOUTY ARTHRITIS
     Dosage: 50 MG, UNK
     Route: 048
     Dates: start: 20170417
  10. FEBURIC [Concomitant]
     Active Substance: FEBUXOSTAT
     Indication: GOUTY ARTHRITIS
     Dosage: 40 MG, UNK
     Route: 048
     Dates: start: 20140707, end: 20140714
  11. FEBURIC [Concomitant]
     Active Substance: FEBUXOSTAT
     Dosage: 40 MG, UNK
     Route: 048
     Dates: start: 20140804, end: 20140929
  12. FEBURIC [Concomitant]
     Active Substance: FEBUXOSTAT
     Dosage: 40 MG, UNK
     Route: 048
     Dates: start: 20141124, end: 20141222
  13. TASIGNA [Suspect]
     Active Substance: NILOTINIB
     Indication: CHRONIC MYELOID LEUKAEMIA
     Dosage: 600 OT, UNK
     Route: 048
     Dates: start: 20140707, end: 20141221
  14. SINOMIN [Concomitant]
     Dosage: 1 GTT, UNK
     Route: 065
     Dates: start: 20170417, end: 20170514

REACTIONS (5)
  - Gingival bleeding [Unknown]
  - Blood bilirubin increased [Recovered/Resolved]
  - Blood bilirubin increased [Not Recovered/Not Resolved]
  - Thrombocytopenia [Not Recovered/Not Resolved]
  - Anaemia [Unknown]

NARRATIVE: CASE EVENT DATE: 20140926
